FAERS Safety Report 21156654 (Version 2)
Quarter: 2022Q3

REPORT INFORMATION
  Report Type: Spontaneous
  Country: US (occurrence: US)
  Receive Date: 20220801
  Receipt Date: 20220803
  Transmission Date: 20221027
  Serious: Yes (Other)
  Sender: FDA-Public Use
  Company Number: US-ELI_LILLY_AND_COMPANY-US202207012109

PATIENT
  Age: 55 Year
  Sex: Female
  Weight: 44.898 kg

DRUGS (4)
  1. TADALAFIL [Suspect]
     Active Substance: TADALAFIL
     Indication: Product used for unknown indication
     Dosage: UNK UNK, UNKNOWN
     Route: 065
     Dates: start: 202201
  2. OPSUMIT [Suspect]
     Active Substance: MACITENTAN
     Indication: Product used for unknown indication
     Dosage: UNK UNK, UNKNOWN
     Route: 065
     Dates: start: 202205
  3. LASIX [Suspect]
     Active Substance: FUROSEMIDE
     Indication: Polyuria
     Dosage: UNK UNK, UNKNOWN
     Route: 065
  4. REMODULIN [Suspect]
     Active Substance: TREPROSTINIL
     Indication: Pulmonary arterial hypertension
     Dosage: UNK UNK, OTHER (30.5 NG/KG/MIN, CONTINUOS)
     Route: 058
     Dates: start: 20210908

REACTIONS (12)
  - Jaundice [Unknown]
  - Fluid retention [Unknown]
  - Diplopia [Unknown]
  - Visual impairment [Unknown]
  - Vasodilatation [Unknown]
  - Sleep disorder [Unknown]
  - Anisocoria [Unknown]
  - Erythema [Unknown]
  - Vision blurred [Unknown]
  - Dyspnoea [Unknown]
  - Dizziness [Unknown]
  - Fatigue [Unknown]

NARRATIVE: CASE EVENT DATE: 20220101
